FAERS Safety Report 18618793 (Version 3)
Quarter: 2021Q2

REPORT INFORMATION
  Report Type: Spontaneous
  Country: JP (occurrence: JP)
  Receive Date: 20201215
  Receipt Date: 20210413
  Transmission Date: 20210717
  Serious: Yes (Hospitalization, Other)
  Sender: FDA-Public Use
  Company Number: JP-SA-2020SA356470

PATIENT
  Age: 79 Year
  Sex: Male

DRUGS (2)
  1. TEGAFUR GIMERACIL AND OTERACIL POTASSIUM [Suspect]
     Active Substance: GIMERACIL\OTERACIL\TEGAFUR
     Indication: GASTRIC CANCER
     Dosage: 2 DF, Q3W
     Route: 048
  2. ELPLAT [Suspect]
     Active Substance: OXALIPLATIN
     Indication: GASTRIC CANCER
     Dosage: 2 COURSES
     Route: 041

REACTIONS (3)
  - Decreased appetite [Recovering/Resolving]
  - Tumour haemorrhage [Recovering/Resolving]
  - Diarrhoea [Recovering/Resolving]
